FAERS Safety Report 22918828 (Version 2)
Quarter: 2024Q4

REPORT INFORMATION
  Report Type: Report from Study
  Country: US (occurrence: US)
  Receive Date: 20230907
  Receipt Date: 20241108
  Transmission Date: 20250115
  Serious: Yes (Other)
  Sender: NOVARTIS
  Company Number: US-002147023-NVSC2023US193597

PATIENT
  Sex: Male

DRUGS (1)
  1. ENTRESTO [Suspect]
     Active Substance: SACUBITRIL\VALSARTAN
     Indication: Product used for unknown indication
     Dosage: 1 DOSAGE FORM, (49.51 MG) BID
     Route: 048
     Dates: start: 2019

REACTIONS (10)
  - Thrombosis [Unknown]
  - Muscular weakness [Unknown]
  - Hypotension [Unknown]
  - Feeling abnormal [Unknown]
  - Amnesia [Unknown]
  - Asthenia [Unknown]
  - Gait disturbance [Unknown]
  - Limb discomfort [Unknown]
  - Ill-defined disorder [Unknown]
  - Sensation of blood flow [Unknown]

NARRATIVE: CASE EVENT DATE: 20220101
